FAERS Safety Report 18425493 (Version 2)
Quarter: 2020Q4

REPORT INFORMATION
  Report Type: Report from Study
  Country: BR (occurrence: BR)
  Receive Date: 20201026
  Receipt Date: 20201029
  Transmission Date: 20210114
  Serious: Yes (Hospitalization)
  Sender: FDA-Public Use
  Company Number: BR-ROCHE-2569088

PATIENT
  Age: 66 Year
  Sex: Female
  Weight: 60 kg

DRUGS (7)
  1. ATEZOLIZUMAB. [Suspect]
     Active Substance: ATEZOLIZUMAB
     Indication: NON-SMALL CELL LUNG CANCER
     Dosage: DATE OF MOST RECENT DOSE OF ATEZOLIZUMAB:14/MAY/2020
     Route: 041
     Dates: start: 20200227
  2. PARACETAMOL [Concomitant]
     Active Substance: ACETAMINOPHEN
     Indication: FIBROMYALGIA
     Route: 048
     Dates: start: 2014
  3. PEMETREXED. [Suspect]
     Active Substance: PEMETREXED
     Indication: NON-SMALL CELL LUNG CANCER
     Dosage: DOSE OF LAST PEMETREXED ADMINISTERED PRIOR TO SAE ONSET:745 MG?MOS RECENT DOSE OF LAST PEMETREXED (7
     Route: 042
     Dates: start: 20200227
  4. VITAMIN B12 [Concomitant]
     Active Substance: CYANOCOBALAMIN
     Dosage: 1 AMPULE.
     Route: 030
     Dates: start: 20200214, end: 20200224
  5. FOLIC ACID. [Concomitant]
     Active Substance: FOLIC ACID
     Route: 048
     Dates: start: 20200214
  6. CISPLATIN. [Suspect]
     Active Substance: CISPLATIN
     Indication: NON-SMALL CELL LUNG CANCER
     Dosage: DOSE OF LAST CISPLATIN ADMINISTERED PRIOR TO SAE ONSET: 111.75 MG?MOST RECENT DOSE OF LAST CISPLATIN
     Route: 042
     Dates: start: 20200227
  7. DIAZEPAM. [Concomitant]
     Active Substance: DIAZEPAM
     Indication: DEPRESSION
     Route: 048
     Dates: start: 2019

REACTIONS (2)
  - Influenza [Not Recovered/Not Resolved]
  - Febrile neutropenia [Recovered/Resolved]

NARRATIVE: CASE EVENT DATE: 20200313
